FAERS Safety Report 13312443 (Version 7)
Quarter: 2017Q2

REPORT INFORMATION
  Report Type: Report from Study
  Country: US (occurrence: US)
  Receive Date: 20170309
  Receipt Date: 20170517
  Transmission Date: 20170830
  Serious: No
  Sender: FDA-Public Use
  Company Number: PHEH2017US007088

PATIENT
  Sex: Female

DRUGS (2)
  1. GILENYA [Suspect]
     Active Substance: FINGOLIMOD HYDROCHLORIDE
     Indication: MULTIPLE SCLEROSIS
     Dosage: 0.5 MG, QD
     Route: 048
  2. GILENYA [Suspect]
     Active Substance: FINGOLIMOD HYDROCHLORIDE
     Dosage: 0.5 MG, QOD
     Route: 048

REACTIONS (10)
  - Daydreaming [Unknown]
  - Feeling abnormal [Unknown]
  - Malaise [Unknown]
  - Fall [Unknown]
  - Asthenia [Unknown]
  - Balance disorder [Unknown]
  - Underdose [Unknown]
  - Cognitive disorder [Unknown]
  - Hypoaesthesia [Unknown]
  - Decreased activity [Unknown]
